FAERS Safety Report 19203310 (Version 4)
Quarter: 2021Q2

REPORT INFORMATION
  Report Type: Spontaneous
  Country: GB (occurrence: GB)
  Receive Date: 20210430
  Receipt Date: 20210616
  Transmission Date: 20210717
  Serious: Yes (Disabling, Other)
  Sender: FDA-Public Use
  Company Number: GB-AMERICAN REGENT INC-2021001036

PATIENT
  Age: 50 Year
  Sex: Female
  Weight: 58.06 kg

DRUGS (4)
  1. VITAMIN B12 [Concomitant]
     Active Substance: CYANOCOBALAMIN
     Indication: PRODUCT USED FOR UNKNOWN INDICATION
     Dosage: UNK
     Route: 065
  2. FERINJECT [Suspect]
     Active Substance: FERRIC CARBOXYMALTOSE
     Indication: IRON DEFICIENCY ANAEMIA
     Dosage: 1000 MG (FIRST DOSE)
     Dates: start: 20210319
  3. FERINJECT [Suspect]
     Active Substance: FERRIC CARBOXYMALTOSE
     Dosage: 500 MG (SECOND DOSE); 12 DAYS AFTER FIRST DOSE
     Dates: start: 2021, end: 2021
  4. VITAMIN D                          /00107901/ [Concomitant]
     Active Substance: ERGOCALCIFEROL
     Indication: PRODUCT USED FOR UNKNOWN INDICATION
     Dosage: UNK
     Route: 065

REACTIONS (41)
  - Vitreous floaters [Recovering/Resolving]
  - Skin atrophy [Unknown]
  - Pruritus [Unknown]
  - Hypertrichosis [Unknown]
  - Madarosis [Unknown]
  - Dysgeusia [Unknown]
  - Hair growth abnormal [Unknown]
  - Nail growth abnormal [Unknown]
  - Heart rate increased [Unknown]
  - Chest pain [Unknown]
  - Product administration error [Unknown]
  - Skin texture abnormal [Unknown]
  - Skin discolouration [Unknown]
  - Skin wrinkling [Unknown]
  - Administration site injury [Unknown]
  - Dyspnoea [Recovered/Resolved]
  - Pigmentation disorder [Recovering/Resolving]
  - Dry skin [Recovering/Resolving]
  - Skin hyperpigmentation [Unknown]
  - Nausea [Recovered/Resolved]
  - Impaired work ability [Unknown]
  - Vomiting [Not Recovered/Not Resolved]
  - Visual impairment [Recovered/Resolved]
  - Yellow skin [Unknown]
  - Intracranial pressure increased [Unknown]
  - Muscle tightness [Recovering/Resolving]
  - Hypophosphataemia [Recovered/Resolved]
  - Lethargy [Not Recovered/Not Resolved]
  - Gait inability [Unknown]
  - Skin disorder [Recovered/Resolved]
  - Chest discomfort [Recovered/Resolved]
  - Intercepted product prescribing error [Unknown]
  - Vision blurred [Recovered/Resolved]
  - Stress [Unknown]
  - Heart rate irregular [Unknown]
  - Tinnitus [Recovered/Resolved]
  - Glossodynia [Recovered/Resolved]
  - Blindness transient [Recovered/Resolved]
  - Eye colour change [Unknown]
  - Bedridden [Unknown]
  - Drug monitoring procedure incorrectly performed [Unknown]

NARRATIVE: CASE EVENT DATE: 2021
